FAERS Safety Report 24696872 (Version 1)
Quarter: 2024Q4

REPORT INFORMATION
  Report Type: Other
  Country: IN (occurrence: IN)
  Receive Date: 20241204
  Receipt Date: 20241204
  Transmission Date: 20250115
  Serious: Yes (Life-Threatening)
  Sender: B BRAUN
  Company Number: IN-B.Braun Medical Inc.-2166480

PATIENT
  Age: 50 Year
  Sex: Female

DRUGS (11)
  1. MEROPENEM [Suspect]
     Active Substance: MEROPENEM
     Indication: Sepsis
  2. LINEZOLID [Suspect]
     Active Substance: LINEZOLID
  3. Intravenous fluids [Concomitant]
  4. DEXAMETHASONE [Concomitant]
     Active Substance: DEXAMETHASONE
  5. APREMILAST [Concomitant]
     Active Substance: APREMILAST
  6. DAPSONE [Concomitant]
     Active Substance: DAPSONE
  7. DOLUTEGRAVIR [Concomitant]
     Active Substance: DOLUTEGRAVIR
  8. LAMIVUDINE [Concomitant]
     Active Substance: LAMIVUDINE
  9. TENOFOVIR [Concomitant]
     Active Substance: TENOFOVIR
  10. PIPERACILLIN SODIUM\TAZOBACTAM SODIUM [Suspect]
     Active Substance: PIPERACILLIN SODIUM\TAZOBACTAM SODIUM
  11. COTRIMOXAZOLE [Suspect]
     Active Substance: SULFAMETHOXAZOLE\TRIMETHOPRIM

REACTIONS (1)
  - Drug ineffective [Unknown]
